FAERS Safety Report 9155256 (Version 1)
Quarter: 2013Q1

REPORT INFORMATION
  Report Type: Spontaneous
  Country: FR (occurrence: FR)
  Receive Date: 20130311
  Receipt Date: 20130311
  Transmission Date: 20140127
  Serious: Yes (Hospitalization)
  Sender: FDA-Public Use
  Company Number: FR-ROCHE-1199429

PATIENT
  Age: 77 Year
  Sex: Female

DRUGS (14)
  1. HERCEPTIN [Suspect]
     Indication: BREAST CANCER
     Route: 042
     Dates: start: 20121026
  2. HERCEPTIN [Suspect]
     Dosage: SECOND CYCLE
     Route: 042
     Dates: start: 20121115
  3. TAXOTERE [Suspect]
     Indication: BREAST CANCER
     Route: 042
     Dates: start: 20121026
  4. TAXOTERE [Suspect]
     Route: 042
     Dates: start: 20121115
  5. ALDACTONE [Concomitant]
     Route: 065
  6. KERLONE [Concomitant]
     Dosage: 1/2 PER DAY
     Route: 065
  7. STRUCTUM [Concomitant]
     Route: 065
  8. TRAMADOL [Concomitant]
     Route: 065
  9. TRIFLUCAN [Concomitant]
     Route: 065
  10. ZELITREX [Concomitant]
     Dosage: AFTER STARTING OF NEW CHEMOTHERAPY
     Route: 065
  11. GRANOCYTE [Concomitant]
     Dosage: 48 HOURS AFTER THE CYCLE OF CHEMOTHERAPY FOR 5 DAYS
     Route: 065
  12. IMODIUM [Concomitant]
     Route: 065
  13. MOTILIUM-M [Concomitant]
     Dosage: DRUG: MOTILIUM
     Route: 065
  14. EMEND [Concomitant]
     Route: 065

REACTIONS (2)
  - Skin erosion [Recovered/Resolved]
  - Erythema [Recovered/Resolved]
